FAERS Safety Report 25217271 (Version 1)
Quarter: 2025Q2

REPORT INFORMATION
  Report Type: Report from Study
  Country: CO (occurrence: CO)
  Receive Date: 20250420
  Receipt Date: 20250420
  Transmission Date: 20250716
  Serious: Yes (Hospitalization)
  Sender: JOHNSON AND JOHNSON
  Company Number: CO-JNJFOC-20250411715

PATIENT
  Age: 23 Year
  Sex: Male
  Weight: 70 kg

DRUGS (5)
  1. INVEGA SUSTENNA [Suspect]
     Active Substance: PALIPERIDONE PALMITATE
     Indication: Schizophrenia
     Route: 030
     Dates: start: 20240415
  2. INVEGA SUSTENNA [Suspect]
     Active Substance: PALIPERIDONE PALMITATE
  3. INVEGA SUSTENNA [Suspect]
     Active Substance: PALIPERIDONE PALMITATE
  4. ESCITALOPRAM OXALATE [Concomitant]
     Active Substance: ESCITALOPRAM OXALATE
  5. GOTAS OTOLOGICAS [Concomitant]

REACTIONS (4)
  - Eye movement disorder [Recovering/Resolving]
  - Dyspnoea [Recovering/Resolving]
  - Hallucination, auditory [Recovering/Resolving]
  - Ideas of reference [Recovering/Resolving]

NARRATIVE: CASE EVENT DATE: 20240701
